FAERS Safety Report 23358158 (Version 1)
Quarter: 2024Q1

REPORT INFORMATION
  Report Type: Report from Study
  Country: US (occurrence: US)
  Receive Date: 20240102
  Receipt Date: 20240102
  Transmission Date: 20240410
  Serious: Yes (Other)
  Sender: FDA-Public Use
  Company Number: US-OTSUKA-2023_034130

PATIENT
  Age: 84 Year
  Sex: Female

DRUGS (1)
  1. BREXPIPRAZOLE [Suspect]
     Active Substance: BREXPIPRAZOLE
     Indication: Product used for unknown indication
     Dosage: 2 MG (90 DAY SUPPLY)
     Route: 065

REACTIONS (3)
  - Body temperature decreased [Unknown]
  - Unresponsive to stimuli [Unknown]
  - Blood pressure diastolic decreased [Unknown]
